FAERS Safety Report 7228174-8 (Version None)
Quarter: 2011Q1

REPORT INFORMATION
  Report Type: 
  Country: None (occurrence: None)
  Receive Date: 20110114
  Receipt Date: 20110112
  Transmission Date: 20110831
  Serious: Yes (Hospitalization, Other)
  Sender: FDA-Public Use
  Company Number: US-PFIZER INC-2010140623

PATIENT
  Sex: Male
  Weight: 81.6 kg

DRUGS (7)
  1. SUTENT [Suspect]
     Indication: RENAL CELL CARCINOMA
  2. FINASTERIDE [Concomitant]
     Indication: PROSTATIC DISORDER
     Dosage: 5 MG, DAILY
  3. SUTENT [Suspect]
     Indication: METASTATIC RENAL CELL CARCINOMA
     Dosage: 50 MG, 1X/DAY
     Route: 048
     Dates: start: 20101026, end: 20101112
  4. DOXAZOSIN [Concomitant]
     Dosage: UNK
  5. METOPROLOL [Concomitant]
     Dosage: 25 MG, 2X/DAY
  6. TAMSULOSIN [Concomitant]
     Dosage: 0.4 MG, UNK
  7. ACETYLSALICYLIC ACID [Concomitant]
     Dosage: UNK

REACTIONS (2)
  - BRAIN NEOPLASM [None]
  - PENILE HAEMORRHAGE [None]
